FAERS Safety Report 9656601 (Version 1)
Quarter: 2013Q4

REPORT INFORMATION
  Report Type: Spontaneous
  Country: US (occurrence: US)
  Receive Date: 20131030
  Receipt Date: 20131030
  Transmission Date: 20140711
  Serious: No
  Sender: FDA-Public Use
  Company Number: US-GLAXOSMITHKLINE-A1034372A

PATIENT
  Sex: Male

DRUGS (10)
  1. SEREVENT [Suspect]
     Indication: ASTHMA
     Dosage: 1PUFF TWICE PER DAY
     Route: 055
     Dates: start: 201305
  2. SPIRIVA [Suspect]
     Indication: BRONCHOSPASM
     Dosage: 1TAB PER DAY
     Dates: start: 201304
  3. XOPENEX [Suspect]
     Indication: WHEEZING
     Dosage: 2PUFF AS REQUIRED
     Route: 055
  4. CLONIDINE [Concomitant]
  5. ASPIRIN [Concomitant]
  6. VITAMIN [Concomitant]
  7. EYE DROPS [Concomitant]
  8. HCTZ [Concomitant]
  9. BIOTENE ORAL RINSE [Concomitant]
  10. ADVAIR [Concomitant]

REACTIONS (7)
  - Drug ineffective [Unknown]
  - Dry mouth [Unknown]
  - Inhalation therapy [Unknown]
  - Somnolence [Unknown]
  - Dyspnoea [Unknown]
  - Increased upper airway secretion [Unknown]
  - Lip dry [Unknown]
